FAERS Safety Report 8950932 (Version 1)
Quarter: 2012Q4

REPORT INFORMATION
  Report Type: Report from Study
  Country: AU (occurrence: AU)
  Receive Date: 20121207
  Receipt Date: 20121207
  Transmission Date: 20130627
  Serious: Yes (Life-Threatening, Hospitalization, Disabling)
  Sender: FDA-Public Use
  Company Number: AU-PFIZER INC-2012306256

PATIENT
  Age: 60 Year
  Sex: Male

DRUGS (5)
  1. CYCLOPHOSPHAMIDE [Suspect]
     Indication: NODULAR (FOLLICULAR) LYMPHOMA
     Dosage: 750 mg/m2, day 1 of 21 day cycle
     Route: 042
     Dates: start: 20060217
  2. VINCRISTINE SULFATE [Suspect]
     Indication: NODULAR (FOLLICULAR) LYMPHOMA
     Dosage: 1.4 mg/m2 (strenght 2 mg/CAP), day 1 of 21 day cycle
     Route: 042
     Dates: start: 20060217
  3. DOXORUBICIN HCL [Suspect]
     Indication: NODULAR (FOLLICULAR) LYMPHOMA
     Dosage: 50 mg/day,  on day 1 of 21 day cycle
     Route: 042
     Dates: start: 20060217
  4. PREDNISONE [Suspect]
     Indication: NODULAR (FOLLICULAR) LYMPHOMA
     Dosage: 100 mg, on days 1,2,3,4 and 5 of 21 day cycle
     Route: 048
     Dates: start: 20060217
  5. RITUXIMAB [Suspect]
     Indication: NODULAR (FOLLICULAR) LYMPHOMA
     Dosage: 765 mg, monthly
     Route: 042
     Dates: start: 20060515

REACTIONS (1)
  - Subarachnoid haemorrhage [Recovered/Resolved with Sequelae]
